FAERS Safety Report 6940358-2 (Version None)
Quarter: 2010Q3

REPORT INFORMATION
  Report Type: 
  Country: None (occurrence: None)
  Receive Date: 20100825
  Receipt Date: 20100818
  Transmission Date: 20110219
  Serious: No
  Sender: FDA-Public Use
  Company Number: US-PFIZER INC-2010098202

PATIENT
  Sex: Female
  Weight: 74.83 kg

DRUGS (13)
  1. CELEBREX [Suspect]
     Indication: OSTEOARTHRITIS
     Dosage: 200 MG, DAILY
     Route: 048
     Dates: start: 20100625, end: 20100802
  2. CELEBREX [Suspect]
     Indication: OSTEONECROSIS
  3. AROMASIN [Concomitant]
     Dosage: 25 MG, 1X/DAY
     Route: 048
     Dates: start: 20070101
  4. CALCIUM [Concomitant]
     Dosage: 1200 MG, 2X/DAY
  5. MULTI-VITAMINS [Concomitant]
     Dosage: DAILY
  6. MAGNESIUM [Concomitant]
     Dosage: 250 MG, 2X/DAY
  7. ACETYLSALICYLIC ACID [Concomitant]
     Dosage: DAILY
  8. VITAMIN D [Concomitant]
     Dosage: 2000 MG, DAILY
  9. FISH OIL [Concomitant]
     Dosage: 1000 MG, 2X/DAY
  10. FLAXSEED OIL [Concomitant]
     Dosage: UNK, 2X/DAY
  11. VITAMIN B COMPLEX CAP [Concomitant]
     Dosage: DAILY
  12. VENLAFAXINE [Concomitant]
     Indication: SUICIDAL IDEATION
     Dosage: 75 MG, 2X/DAY
  13. VENLAFAXINE [Concomitant]
     Indication: DEPRESSION

REACTIONS (3)
  - DRUG INEFFECTIVE [None]
  - MYALGIA [None]
  - WEIGHT INCREASED [None]
